FAERS Safety Report 12256225 (Version 1)
Quarter: 2016Q2

REPORT INFORMATION
  Report Type: Spontaneous
  Country: US (occurrence: None)
  Receive Date: 20160411
  Receipt Date: 20160411
  Transmission Date: 20160815
  Serious: Yes (Other)
  Sender: FDA-Public Use
  Company Number: None

PATIENT
  Age: 77 Year
  Sex: Male
  Weight: 70.31 kg

DRUGS (6)
  1. REISHI [Concomitant]
     Active Substance: REISHI
  2. CORDYCEPS [Concomitant]
  3. DESITIN MAXIMUM STRENGTH ORIGINAL [Suspect]
     Active Substance: ZINC OXIDE
     Indication: RASH
     Dosage: 1 DROP(S) THREE TIMES A DAY APPLIED TO A SURFACE, USUALLY THE SKIN
     Route: 061
     Dates: start: 20160330, end: 20160406
  4. BIO CURCUMIN [Concomitant]
  5. RESVERTROL [Concomitant]
  6. VITAMIN D [Concomitant]
     Active Substance: CHOLECALCIFEROL

REACTIONS (2)
  - Drug level increased [None]
  - Vertigo [None]

NARRATIVE: CASE EVENT DATE: 20160405
